FAERS Safety Report 7403462-0 (Version None)
Quarter: 2011Q2

REPORT INFORMATION
  Report Type: 
  Country: None (occurrence: None)
  Receive Date: 20110408
  Receipt Date: 20110330
  Transmission Date: 20111010
  Serious: Yes (Death)
  Sender: FDA-Public Use
  Company Number: B0710189A

PATIENT
  Sex: Female

DRUGS (10)
  1. TOPALGIC (FRANCE) [Concomitant]
     Dosage: 100MG AS REQUIRED
     Route: 042
     Dates: start: 20101109
  2. RANIPLEX [Suspect]
     Dosage: 50MG TWICE PER DAY
     Route: 042
     Dates: start: 20101111
  3. CALCIUM + VITAMIN D3 [Concomitant]
  4. SPASFON [Concomitant]
     Dosage: 2AMP PER DAY
     Route: 042
     Dates: start: 20101111, end: 20101111
  5. CERVOXAN [Concomitant]
     Indication: DEMENTIA ALZHEIMER'S TYPE
     Route: 048
  6. PROFENID [Suspect]
     Dosage: 100MG PER DAY
     Route: 042
     Dates: start: 20101111, end: 20101112
  7. CEFAZOLIN [Suspect]
     Indication: ANTIBIOTIC THERAPY
     Dosage: 1.5G PER DAY
     Route: 042
     Dates: start: 20101111
  8. LOVENOX [Suspect]
     Dosage: 2000IUAX PER DAY
     Route: 058
     Dates: start: 20101111
  9. ANESTHETICS [Concomitant]
     Dates: start: 20101111, end: 20101111
  10. PERFALGAN [Concomitant]
     Dosage: 1G THREE TIMES PER DAY
     Route: 042
     Dates: start: 20101109

REACTIONS (4)
  - MULTI-ORGAN FAILURE [None]
  - MALAISE [None]
  - RENAL FAILURE [None]
  - CARDIOGENIC SHOCK [None]
